FAERS Safety Report 11177176 (Version 1)
Quarter: 2015Q2

REPORT INFORMATION
  Report Type: Spontaneous
  Country: RO (occurrence: None)
  Receive Date: 20150608
  Receipt Date: 20150608
  Transmission Date: 20150821
  Serious: Yes (Hospitalization, Other)
  Sender: FDA-Public Use
  Company Number: RO-2015EGA000009

PATIENT
  Age: 64 Year
  Sex: Male

DRUGS (8)
  1. MELOXICAM. [Suspect]
     Active Substance: MELOXICAM
     Indication: PAIN
     Dosage: 2 VIALS
  2. BISEPTOL [Suspect]
     Active Substance: SULFAMETHOXAZOLE\TRIMETHOPRIM
     Indication: URINARY TRACT INFECTION
     Dosage: 3 TABLETS
  3. IBUPROFEN (IBUPROFEN) [Concomitant]
     Active Substance: IBUPROFEN
  4. ALGOCALMIN (METAMIZOLE SODIUM) [Concomitant]
  5. ANTINEVRALGIC (ACETYLSALICYLIC ACID, CAFFEINE, PHENACETIN) [Concomitant]
  6. KETOROLAC [Suspect]
     Active Substance: KETOROLAC\KETOROLAC TROMETHAMINE
     Indication: PAIN
     Dosage: 2 VIALS
  7. PIROXICAM (PIROXICAM) [Concomitant]
  8. CELECOXIB (CELECOXIB) [Concomitant]
     Active Substance: CELECOXIB

REACTIONS (5)
  - Polyneuropathy [None]
  - Hyponatraemia [None]
  - Acidosis [None]
  - Drug interaction [None]
  - Rhabdomyolysis [None]
